FAERS Safety Report 5307065-3 (Version None)
Quarter: 2007Q2

REPORT INFORMATION
  Report Type: 
  Country: None (occurrence: None)
  Receive Date: 20070425
  Receipt Date: 20070416
  Transmission Date: 20071010
  Serious: Yes (Hospitalization)
  Sender: FDA-Public Use
  Company Number: FR-JNJFOC-20070404727

PATIENT
  Age: 46 Year
  Sex: Male

DRUGS (6)
  1. TRAMADOL HCL [Suspect]
     Indication: LIMB INJURY
     Route: 048
  2. METOPROLOL TARTRATE [Concomitant]
     Indication: ESSENTIAL HYPERTENSION
     Route: 048
  3. OLMETEC [Concomitant]
     Indication: ESSENTIAL HYPERTENSION
     Route: 048
  4. PERINDOPRIL ERBUMINE [Concomitant]
     Indication: ESSENTIAL HYPERTENSION
     Route: 048
  5. MINIPRESS [Concomitant]
     Indication: ESSENTIAL HYPERTENSION
     Route: 048
  6. ALDALIX [Concomitant]
     Indication: ESSENTIAL HYPERTENSION
     Route: 048

REACTIONS (4)
  - ABDOMINAL PAIN [None]
  - BLOOD PRESSURE DECREASED [None]
  - HEADACHE [None]
  - HOT FLUSH [None]
